FAERS Safety Report 26092214 (Version 2)
Quarter: 2025Q4

REPORT INFORMATION
  Report Type: Spontaneous
  Country: US (occurrence: US)
  Receive Date: 20251126
  Receipt Date: 20251202
  Transmission Date: 20260117
  Serious: Yes (Other)
  Sender: PFIZER
  Company Number: US-PFIZER INC-202500229842

PATIENT
  Age: 10 Month
  Sex: Female

DRUGS (3)
  1. CARBOPLATIN [Suspect]
     Active Substance: CARBOPLATIN
     Indication: Retinoblastoma
     Dosage: 30 MG, CYCLIC (6 CYCLES 20 ML VOLUME)
     Route: 013
  2. TOPOTECAN HYDROCHLORIDE [Suspect]
     Active Substance: TOPOTECAN HYDROCHLORIDE
     Indication: Retinoblastoma
     Dosage: 0.3 MG, CYCLIC (6 CYCLES 20 ML VOLUME)
     Route: 013
  3. MELPHALAN [Suspect]
     Active Substance: MELPHALAN
     Indication: Retinoblastoma
     Dosage: 4 MG, CYCLIC (6 CYCLES 20 ML VOLUME)
     Route: 013

REACTIONS (4)
  - Air embolism [Recovered/Resolved]
  - Cerebral ischaemia [Recovered/Resolved]
  - Visual pathway disorder [Recovered/Resolved]
  - Off label use [Unknown]
